FAERS Safety Report 13636873 (Version 1)
Quarter: 2017Q2

REPORT INFORMATION
  Report Type: Spontaneous
  Country: US (occurrence: US)
  Receive Date: 20170531
  Receipt Date: 20170531
  Transmission Date: 20170830
  Serious: No
  Sender: FDA-Public Use
  Company Number: US-ASTELLAS-761340

PATIENT
  Age: 65 Year
  Sex: Male

DRUGS (2)
  1. TARCEVA [Suspect]
     Active Substance: ERLOTINIB HYDROCHLORIDE
     Indication: NON-SMALL CELL LUNG CANCER
     Route: 048
     Dates: start: 20110125, end: 20110203
  2. TARCEVA [Suspect]
     Active Substance: ERLOTINIB HYDROCHLORIDE
     Route: 048

REACTIONS (4)
  - Rash [Unknown]
  - Nausea [Unknown]
  - Dyspepsia [Unknown]
  - Vomiting [Unknown]

NARRATIVE: CASE EVENT DATE: 20110121
